FAERS Safety Report 10354609 (Version 3)
Quarter: 2019Q4

REPORT INFORMATION
  Report Type: Spontaneous
  Country: JP (occurrence: JP)
  Receive Date: 20140731
  Receipt Date: 20191126
  Transmission Date: 20200122
  Serious: Yes (Life-Threatening, Hospitalization, Other)
  Sender: FDA-Public Use
  Company Number: JP-TEVA-498375ISR

PATIENT
  Age: 41 Year
  Sex: Male
  Weight: 73 kg

DRUGS (18)
  1. ATORVASTATIN [Concomitant]
     Active Substance: ATORVASTATIN
     Route: 065
  2. LEXAPRO [Interacting]
     Active Substance: ESCITALOPRAM OXALATE
     Indication: DEPRESSION
     Dosage: 10 MILLIGRAM DAILY;
     Route: 065
     Dates: end: 20121129
  3. LAMICTAL [Concomitant]
     Active Substance: LAMOTRIGINE
     Indication: DEPRESSION
     Dosage: 50 MILLIGRAM, BID / 2 / TABLET / 50 MILLIGRAM / 1 DAYS
     Route: 048
     Dates: end: 20121129
  4. LEXAPRO [Interacting]
     Active Substance: ESCITALOPRAM OXALATE
     Dosage: 10 MILLIGRAM DAILY;
     Route: 048
     Dates: start: 20121203
  5. CRESTOR [Concomitant]
     Active Substance: ROSUVASTATIN CALCIUM
     Indication: ACUTE MYOCARDIAL INFARCTION
     Dosage: 2.5 MG, QD / 1 / 2.5 MILLIGRAM / 1 DAYS
     Route: 048
     Dates: start: 20121130
  6. HEPARIN SODIUM. [Concomitant]
     Active Substance: HEPARIN SODIUM
     Indication: ACUTE MYOCARDIAL INFARCTION
     Dosage: 12 KIU, UNK /  12 KU
     Route: 041
     Dates: start: 20121130
  7. ACETYLSALICYLIC ACID [Concomitant]
     Active Substance: ASPIRIN
     Indication: PRODUCT USED FOR UNKNOWN INDICATION
     Route: 048
  8. TAKEPRON [Suspect]
     Active Substance: LANSOPRAZOLE
     Indication: ACUTE MYOCARDIAL INFARCTION
     Dosage: 15 MILLIGRAM DAILY;
     Route: 048
     Dates: start: 20121130
  9. RIVOTRIL [Concomitant]
     Active Substance: CLONAZEPAM
     Indication: DEPRESSION
     Dosage: 0.5 MG, QD / 1  / 0.5 MILLIGRAM / 1 DAYS
     Route: 048
     Dates: start: 20121203, end: 20121203
  10. BAYASPIRIN [Concomitant]
     Active Substance: ASPIRIN
     Indication: ACUTE MYOCARDIAL INFARCTION
     Dosage: 100 MG, QD / 1 / 100 MILLIGRAM / 1 DAYS
     Route: 048
     Dates: start: 20121130
  11. SOLITA [Concomitant]
     Indication: ACUTE MYOCARDIAL INFARCTION
     Dosage: 500 ML, UNK / UNK / 500 ML
     Route: 041
     Dates: start: 20121130
  12. ASPIRIN. [Concomitant]
     Active Substance: ASPIRIN
     Dosage: CONTROLLED RELEASE
     Route: 065
  13. CLOPIDOGREL BISULFATE. [Concomitant]
     Active Substance: CLOPIDOGREL BISULFATE
     Indication: PRODUCT USED FOR UNKNOWN INDICATION
  14. LANDSEN [Concomitant]
     Active Substance: CLONAZEPAM
     Indication: DEPRESSION
     Dosage: 0.5 MG, QD / 1 / / 0.5 MILLIGRAM / 1 DAYS
     Route: 065
     Dates: end: 20121129
  15. NICORANDIS [Concomitant]
     Active Substance: NICORANDIL
     Indication: ACUTE MYOCARDIAL INFARCTION
     Dosage: 5 MG, TID / 3 / 5 MILLIGRAM / 1 DAYS
     Route: 048
     Dates: start: 20121130
  16. CLOPIDOGREL [Concomitant]
     Active Substance: CLOPIDOGREL BISULFATE
     Route: 065
  17. PLAVIX [Concomitant]
     Active Substance: CLOPIDOGREL BISULFATE
     Indication: ACUTE MYOCARDIAL INFARCTION
     Dosage: 75 MG, QD / 1 / 75 MILLIGRAM / 1 DAYS
     Route: 048
     Dates: start: 20121130
  18. MAGNESIUM OXIDE. [Concomitant]
     Active Substance: MAGNESIUM OXIDE
     Indication: ACUTE MYOCARDIAL INFARCTION
     Dosage: 0.5 MG, TID / 3 / UNK / 0.5 MILLIGRAM / 1 DAYS
     Dates: start: 20121130

REACTIONS (5)
  - Ventricular fibrillation [Recovered/Resolved]
  - Apathy [Recovering/Resolving]
  - Electrocardiogram QT prolonged [Recovered/Resolved]
  - Drug interaction [Recovered/Resolved]
  - Torsade de pointes [Recovering/Resolving]

NARRATIVE: CASE EVENT DATE: 20121205
